FAERS Safety Report 10873366 (Version 1)
Quarter: 2015Q1

REPORT INFORMATION
  Report Type: Spontaneous
  Country: US (occurrence: None)
  Receive Date: 20150223
  Receipt Date: 20150223
  Transmission Date: 20150721
  Serious: No
  Sender: FDA-Public Use
  Company Number: None

PATIENT
  Age: 50 Year
  Sex: Female

DRUGS (20)
  1. AMBIEN [Concomitant]
     Active Substance: ZOLPIDEM TARTRATE
  2. BUPROPION [Concomitant]
     Active Substance: BUPROPION
  3. ABILIFY [Concomitant]
     Active Substance: ARIPIPRAZOLE
  4. TIGAN [Concomitant]
     Active Substance: TRIMETHOBENZAMIDE HYDROCHLORIDE
  5. OMEPRAZOLE. [Concomitant]
     Active Substance: OMEPRAZOLE
  6. TECFIDERA [Concomitant]
     Active Substance: DIMETHYL FUMARATE
  7. ATIVAN [Concomitant]
     Active Substance: LORAZEPAM
  8. MELOXICAM. [Suspect]
     Active Substance: MELOXICAM
  9. SOLU-MEDROL [Concomitant]
     Active Substance: METHYLPREDNISOLONE SODIUM SUCCINATE
  10. LIPITOR [Concomitant]
     Active Substance: ATORVASTATIN CALCIUM
  11. PROAIR HFA [Concomitant]
     Active Substance: ALBUTEROL SULFATE
  12. BACLOFEN. [Concomitant]
     Active Substance: BACLOFEN
  13. ZOLPIDEM [Suspect]
     Active Substance: ZOLPIDEM\ZOLPIDEM TARTRATE
  14. AMPYRA [Suspect]
     Active Substance: DALFAMPRIDINE
     Indication: MULTIPLE SCLEROSIS
     Route: 048
     Dates: start: 201109, end: 201410
  15. TIMOPTIC OPHT DROP [Concomitant]
  16. CELEXA [Concomitant]
     Active Substance: CITALOPRAM HYDROBROMIDE
  17. ONDASETRON [Suspect]
     Active Substance: ONDANSETRON
  18. PREDNISONE. [Concomitant]
     Active Substance: PREDNISONE
  19. NORCO [Concomitant]
     Active Substance: ACETAMINOPHEN\HYDROCODONE BITARTRATE
  20. XALATAN OPHT DROP [Concomitant]

REACTIONS (1)
  - Urinary tract infection [None]

NARRATIVE: CASE EVENT DATE: 20141211
